FAERS Safety Report 16416044 (Version 1)
Quarter: 2019Q2

REPORT INFORMATION
  Report Type: Spontaneous
  Country: JP (occurrence: JP)
  Receive Date: 20190611
  Receipt Date: 20190611
  Transmission Date: 20190711
  Serious: Yes (Hospitalization, Disabling, Other)
  Sender: FDA-Public Use
  Company Number: JP-JNJFOC-20190606374

PATIENT
  Age: 43 Year
  Sex: Female

DRUGS (6)
  1. LEUKERIN [Suspect]
     Active Substance: MERCAPTOPURINE
     Indication: COLITIS ULCERATIVE
     Route: 048
     Dates: start: 201701, end: 201810
  2. LEUKERIN [Suspect]
     Active Substance: MERCAPTOPURINE
     Indication: COLITIS ULCERATIVE
     Route: 048
     Dates: start: 201901, end: 201905
  3. LIALDA [Concomitant]
     Active Substance: MESALAMINE
     Route: 048
     Dates: start: 201812
  4. SIMPONI [Suspect]
     Active Substance: GOLIMUMAB
     Indication: COLITIS ULCERATIVE
     Route: 058
     Dates: start: 20171114
  5. LEUKERIN [Suspect]
     Active Substance: MERCAPTOPURINE
     Indication: COLITIS ULCERATIVE
     Route: 048
     Dates: start: 201810
  6. PENTASA [Concomitant]
     Active Substance: MESALAMINE
     Route: 065
     Dates: end: 201812

REACTIONS (3)
  - Colitis ulcerative [Unknown]
  - Acute myeloid leukaemia [Not Recovered/Not Resolved]
  - Bone marrow failure [Unknown]

NARRATIVE: CASE EVENT DATE: 201810
